FAERS Safety Report 4524908-1 (Version None)
Quarter: 2004Q4

REPORT INFORMATION
  Report Type: 
  Country: None (occurrence: None)
  Receive Date: 20041213
  Receipt Date: 20041025
  Transmission Date: 20050328
  Serious: Yes (Other)
  Sender: FDA-Public Use
  Company Number: 200414046FR

PATIENT
  Age: 74 Year
  Sex: Male
  Weight: 74 kg

DRUGS (7)
  1. TAXOTERE [Suspect]
     Indication: LUNG NEOPLASM MALIGNANT
     Dates: start: 20031001
  2. ALUMINUM HYDROXIDE AND MAGNESIUM TRISILICATE [Concomitant]
  3. AMIODARONE HCL [Concomitant]
  4. PREVISCAN [Concomitant]
  5. BECOTIDE [Concomitant]
     Indication: COUGH
     Route: 048
     Dates: start: 20040901
  6. CITRATE DE BETAINE [Concomitant]
  7. SMECTA [Concomitant]

REACTIONS (2)
  - APHONIA [None]
  - ORAL FUNGAL INFECTION [None]
